FAERS Safety Report 9893864 (Version 2)
Quarter: 2014Q2

REPORT INFORMATION
  Report Type: Spontaneous
  Country: US (occurrence: US)
  Receive Date: 20140213
  Receipt Date: 20140421
  Transmission Date: 20141212
  Serious: Yes (Hospitalization, Other)
  Sender: FDA-Public Use
  Company Number: US-ELI_LILLY_AND_COMPANY-US201402001023

PATIENT
  Age: 75 Year
  Sex: Female

DRUGS (12)
  1. EVISTA [Suspect]
     Indication: OSTEOPOROSIS
     Dosage: 60 MG, QD
     Route: 065
     Dates: start: 200206
  2. EVISTA [Suspect]
     Indication: BONE DISORDER
  3. PLAVIX [Concomitant]
     Indication: STENT PLACEMENT
     Route: 065
  4. LISINOPRIL [Concomitant]
     Route: 065
  5. ATENOLOL [Concomitant]
     Route: 065
  6. ECOTRIN [Concomitant]
     Dosage: 81 MG, UNKNOWN
     Route: 065
  7. SYNTHROID [Concomitant]
     Dosage: 75 UG, UNKNOWN
     Route: 065
  8. CALCIUM [Concomitant]
     Dosage: UNK, BID
     Route: 065
  9. LIPITOR [Concomitant]
     Route: 065
  10. HYDROCHLOROTHIAZIDE [Concomitant]
     Dosage: UNK, QOD
     Route: 065
  11. PROTONIX [Concomitant]
     Dosage: UNK, QOD
     Route: 065
  12. ERYTHROMYCIN [Concomitant]
     Dosage: UNK, UNKNOWN
     Route: 047

REACTIONS (2)
  - Myocardial infarction [Recovered/Resolved]
  - Disorientation [Recovered/Resolved]
